FAERS Safety Report 5528188-X (Version None)
Quarter: 2007Q4

REPORT INFORMATION
  Report Type: 
  Country: None (occurrence: None)
  Receive Date: 20071128
  Receipt Date: 20071120
  Transmission Date: 20080405
  Serious: Yes (Other)
  Sender: FDA-Public Use
  Company Number: AU-PFIZER INC-2007097560

PATIENT
  Age: 80 Year
  Sex: Female

DRUGS (2)
  1. CELEBREX [Suspect]
  2. PRAVACHOL [Concomitant]

REACTIONS (4)
  - BLOOD ALKALINE PHOSPHATASE INCREASED [None]
  - GAMMA-GLUTAMYLTRANSFERASE INCREASED [None]
  - MYOCARDIAL INFARCTION [None]
  - TRANSAMINASES INCREASED [None]
